FAERS Safety Report 10108896 (Version 1)
Quarter: 2014Q2

REPORT INFORMATION
  Report Type: Spontaneous
  Country: US (occurrence: None)
  Receive Date: 20140423
  Receipt Date: 20140423
  Transmission Date: 20141212
  Serious: Yes (Hospitalization)
  Sender: FDA-Public Use
  Company Number: OTH-PAT-2013020

PATIENT
  Sex: Male

DRUGS (1)
  1. CARBAGLU (CARGLUMIC ACID) [Suspect]
     Indication: AMINO ACID METABOLISM DISORDER
     Dosage: 1,200.000 MILLIGRAMS, TID, 1 EVERY DAY, ORAL
     Route: 048
     Dates: start: 20130508

REACTIONS (1)
  - Ammonia increased [None]
